FAERS Safety Report 11777035 (Version 1)
Quarter: 2015Q4

REPORT INFORMATION
  Report Type: Spontaneous
  Country: GB (occurrence: GB)
  Receive Date: 20151125
  Receipt Date: 20151125
  Transmission Date: 20160304
  Serious: Yes (Disabling, Other)
  Sender: FDA-Public Use
  Company Number: GB-TEVA-609943ACC

PATIENT
  Age: 57 Year
  Sex: Female
  Weight: 75 kg

DRUGS (6)
  1. PAROXETINE [Suspect]
     Active Substance: PAROXETINE\PAROXETINE HYDROCHLORIDE
     Indication: DEPRESSION
     Dosage: 10MG TO 40MG
     Route: 048
     Dates: start: 20140723, end: 20151030
  2. LEVOTHYROXINE. [Concomitant]
     Active Substance: LEVOTHYROXINE
  3. SIMVASTATIN. [Concomitant]
     Active Substance: SIMVASTATIN
  4. GELTEARS [Concomitant]
  5. INSULIN DETEMIR [Concomitant]
     Active Substance: INSULIN DETEMIR
  6. INSULIN GLARGINE [Concomitant]
     Active Substance: INSULIN GLARGINE

REACTIONS (7)
  - Self-injurious ideation [Recovering/Resolving]
  - Abnormal weight gain [Recovering/Resolving]
  - Irritability [Recovering/Resolving]
  - Violence-related symptom [Recovering/Resolving]
  - Feeling abnormal [Recovering/Resolving]
  - Personality change [Not Recovered/Not Resolved]
  - Intentional self-injury [Recovering/Resolving]

NARRATIVE: CASE EVENT DATE: 20140813
